FAERS Safety Report 6724724-6 (Version None)
Quarter: 2010Q2

REPORT INFORMATION
  Report Type: 
  Country: None (occurrence: None)
  Receive Date: 20100513
  Receipt Date: 20100506
  Transmission Date: 20101027
  Serious: Yes (Hospitalization)
  Sender: FDA-Public Use
  Company Number: FR-MERCK-1002FRA00087

PATIENT
  Age: 78 Year
  Sex: Male

DRUGS (6)
  1. COSOPT [Suspect]
     Indication: RETINOPATHY
     Route: 065
     Dates: start: 20091101
  2. SERTRALINE HYDROCHLORIDE [Concomitant]
     Route: 065
     Dates: start: 20090601
  3. METFORMIN [Concomitant]
     Route: 065
  4. FUROSEMIDE AND SPIRONOLACTONE [Concomitant]
     Route: 048
  5. GLIMEPIRIDE [Concomitant]
     Route: 065
  6. PERINDOPRIL ARGININE [Concomitant]
     Route: 048

REACTIONS (2)
  - HYPERTENSION [None]
  - OEDEMA GENITAL [None]
